FAERS Safety Report 25330494 (Version 1)
Quarter: 2025Q2

REPORT INFORMATION
  Report Type: Report from Study
  Country: US (occurrence: US)
  Receive Date: 20250519
  Receipt Date: 20250519
  Transmission Date: 20250717
  Serious: Yes (Other)
  Sender: CSL BEHRING
  Company Number: US-BEH-2025205124

PATIENT
  Age: 27 Year
  Sex: Female
  Weight: 51 kg

DRUGS (1)
  1. HIZENTRA [Suspect]
     Active Substance: HUMAN IMMUNOGLOBULIN G
     Route: 065

REACTIONS (1)
  - Coagulopathy [Unknown]
